FAERS Safety Report 7437160-4 (Version None)
Quarter: 2011Q2

REPORT INFORMATION
  Report Type: 
  Country: None (occurrence: None)
  Receive Date: 20110426
  Receipt Date: 20110415
  Transmission Date: 20111010
  Serious: Yes (Hospitalization, Other)
  Sender: FDA-Public Use
  Company Number: AU-JNJFOC-20110205465

PATIENT
  Age: 89 Year
  Sex: Female

DRUGS (6)
  1. CALCIUM [Concomitant]
     Route: 065
  2. HALOPERIDOL [Suspect]
     Indication: PRODUCT USED FOR UNKNOWN INDICATION
     Route: 065
  3. EVISTA [Concomitant]
     Route: 065
  4. RISPERDAL [Suspect]
     Indication: PRODUCT USED FOR UNKNOWN INDICATION
     Route: 048
  5. SERTRALINE [Concomitant]
     Route: 065
  6. VITAMIN TAB [Concomitant]
     Route: 065

REACTIONS (11)
  - GENERAL PHYSICAL HEALTH DETERIORATION [None]
  - BREATH SOUNDS ABNORMAL [None]
  - CHOKING [None]
  - SOCIAL AVOIDANT BEHAVIOUR [None]
  - PNEUMONIA [None]
  - HYPOTENSION [None]
  - APHONIA [None]
  - EXTRAPYRAMIDAL DISORDER [None]
  - CONFUSIONAL STATE [None]
  - COGNITIVE DISORDER [None]
  - ASTHENIA [None]
